FAERS Safety Report 10550271 (Version 1)
Quarter: 2014Q4

REPORT INFORMATION
  Report Type: Spontaneous
  Country: SK (occurrence: SK)
  Receive Date: 20141029
  Receipt Date: 20141029
  Transmission Date: 20150529
  Serious: Yes (Death)
  Sender: FDA-Public Use
  Company Number: SK-ROCHE-1480635

PATIENT
  Sex: Female

DRUGS (4)
  1. MABTHERA [Suspect]
     Active Substance: RITUXIMAB
     Route: 065
     Dates: start: 20140422
  2. MABTHERA [Suspect]
     Active Substance: RITUXIMAB
     Indication: PEMPHIGUS
     Route: 065
     Dates: start: 20140415
  3. MABTHERA [Suspect]
     Active Substance: RITUXIMAB
     Route: 065
     Dates: start: 20140429
  4. MABTHERA [Suspect]
     Active Substance: RITUXIMAB
     Route: 065
     Dates: start: 20140506

REACTIONS (2)
  - Cardiac disorder [Fatal]
  - Off label use [Unknown]
